FAERS Safety Report 23209048 (Version 1)
Quarter: 2023Q4

REPORT INFORMATION
  Report Type: Spontaneous
  Country: US (occurrence: US)
  Receive Date: 20231121
  Receipt Date: 20231121
  Transmission Date: 20240110
  Serious: No
  Sender: FDA-Public Use
  Company Number: US-BIOGEN-2023BI01234115

PATIENT
  Age: 60 Year
  Sex: Female

DRUGS (4)
  1. VUMERITY [Suspect]
     Active Substance: DIROXIMEL FUMARATE
     Indication: Multiple sclerosis
     Route: 050
     Dates: start: 20200122, end: 20231115
  2. TYLENOL [Concomitant]
     Active Substance: ACETAMINOPHEN
     Route: 050
  3. ALENDRONATE SODIUM [Concomitant]
     Active Substance: ALENDRONATE SODIUM
     Route: 050
  4. ALBUTEROL SULFATE [Concomitant]
     Active Substance: ALBUTEROL SULFATE
     Route: 050

REACTIONS (8)
  - Head injury [Unknown]
  - Eye contusion [Unknown]
  - Pain in extremity [Unknown]
  - Head discomfort [Unknown]
  - Periorbital swelling [Unknown]
  - Fall [Recovered/Resolved]
  - Pruritus [Unknown]
  - Rash [Unknown]

NARRATIVE: CASE EVENT DATE: 20231101
